FAERS Safety Report 7310321-0 (Version None)
Quarter: 2011Q1

REPORT INFORMATION
  Report Type: 
  Country: None (occurrence: None)
  Receive Date: 20110224
  Receipt Date: 20110121
  Transmission Date: 20110831
  Serious: No
  Sender: FDA-Public Use
  Company Number: US-TYCO HEALTHCARE/MALLINCKRODT-T201100115

PATIENT
  Sex: Female

DRUGS (7)
  1. TRAMADOL HCL [Concomitant]
  2. TECHNESCAN [Suspect]
     Indication: BONE SCAN
     Dosage: UNK
     Route: 042
     Dates: start: 20110117, end: 20110117
  3. GABAPENTIN [Concomitant]
     Dosage: UNK
  4. CITALOPRAM [Concomitant]
     Dosage: UNK
  5. AMITRIPTYLINE [Concomitant]
     Dosage: UNK
  6. ULTRA-TECHNEKOW [Suspect]
     Indication: BONE SCAN
     Dosage: 25 MCI, SINGLE
     Route: 042
     Dates: start: 20110117, end: 20110117
  7. DEXILANT [Concomitant]
     Dosage: UNK

REACTIONS (2)
  - HEADACHE [None]
  - DIZZINESS [None]
